FAERS Safety Report 5034567-X (Version None)
Quarter: 2006Q2

REPORT INFORMATION
  Report Type: 
  Country: None (occurrence: None)
  Receive Date: 20060621
  Receipt Date: 20060608
  Transmission Date: 20061013
  Serious: Yes (Hospitalization)
  Sender: FDA-Public Use
  Company Number: 167-20785-06060477

PATIENT
  Age: 64 Year
  Sex: Female

DRUGS (8)
  1. THALIDOMIDE - PHARMION (THALIDOMIDE) (50 MILLIGRAM, CAPSULES) [Suspect]
     Indication: NON-SMALL CELL LUNG CANCER
     Dosage: 100 MG, DAILY, ORAL
     Route: 048
     Dates: start: 20030806, end: 20030816
  2. GEMCITABINE [Suspect]
     Indication: NON-SMALL CELL LUNG CANCER
     Dosage: 1862 MG, INTRAVENOUS
     Route: 042
     Dates: start: 20030801, end: 20030807
  3. CARBOPLATIN [Suspect]
     Indication: NON-SMALL CELL LUNG CANCER
     Dosage: 510 MG, DAILY, INTRAVENOUS
     Route: 042
     Dates: start: 20030801, end: 20030801
  4. METOCLOPRAMIDE [Concomitant]
  5. MAGNESIUM HYDROXIDE TAB [Concomitant]
  6. SENNA [Concomitant]
  7. NACL (SODIUM CHLORIDE) [Concomitant]
  8. AUGMENTIN '125' [Concomitant]

REACTIONS (7)
  - DEHYDRATION [None]
  - DIARRHOEA [None]
  - METASTATIC NEOPLASM [None]
  - OEDEMA PERIPHERAL [None]
  - OESOPHAGEAL STENOSIS [None]
  - VENOUS STENOSIS [None]
  - VOMITING [None]
